FAERS Safety Report 4659576-1 (Version None)
Quarter: 2005Q2

REPORT INFORMATION
  Report Type: 
  Country: None (occurrence: None)
  Receive Date: 20050510
  Receipt Date: 20050427
  Transmission Date: 20051028
  Serious: Yes (Hospitalization)
  Sender: FDA-Public Use
  Company Number: 2005AL001599

PATIENT
  Age: 0 Year
  Sex: Male

DRUGS (10)
  1. SERAX [Suspect]
     Dosage: 80 MG; QD; PO      :  X1; PO
     Route: 048
     Dates: end: 20050124
  2. SERAX [Suspect]
     Dosage: 80 MG; QD; PO      :  X1; PO
     Route: 048
     Dates: start: 20050125, end: 20050125
  3. ALCOHOL [Suspect]
     Dosage: X1
     Dates: start: 20050125, end: 20050125
  4. ANAFRANIL [Suspect]
     Dosage: 150 MG; X1;PO    : 750 MG;X1;PO
     Route: 048
     Dates: end: 20050124
  5. ANAFRANIL [Suspect]
     Dosage: 150 MG; X1;PO    : 750 MG;X1;PO
     Route: 048
     Dates: start: 20050125, end: 20050125
  6. ETOMIDATE [Suspect]
     Dates: start: 20050125
  7. MIDAZOLAM HCL [Suspect]
     Dates: start: 20050125
  8. LARGACTIL [Suspect]
     Dosage: 1250 MG; X1;PO
     Route: 048
     Dates: start: 20050125, end: 20050125
  9. NORSET [Suspect]
     Dosage: 300 MG;X1; PO
     Route: 048
     Dates: start: 20050125, end: 20050125
  10. SUXAMETHONIUM [Suspect]
     Dates: start: 20050125

REACTIONS (9)
  - DRUG EXPOSURE DURING PREGNANCY [None]
  - DRUG WITHDRAWAL SYNDROME NEONATAL [None]
  - FEEDING PROBLEM IN NEWBORN [None]
  - HYPOTONIA NEONATAL [None]
  - JAUNDICE NEONATAL [None]
  - OVERDOSE [None]
  - POOR WEIGHT GAIN NEONATAL [None]
  - SUICIDE ATTEMPT [None]
  - TREMOR NEONATAL [None]
